FAERS Safety Report 6787333-9 (Version None)
Quarter: 2010Q2

REPORT INFORMATION
  Report Type: 
  Country: None (occurrence: None)
  Receive Date: 20100623
  Receipt Date: 20060810
  Transmission Date: 20101027
  Serious: No
  Sender: FDA-Public Use
  Company Number: US-PFIZER INC-2007020945

PATIENT
  Sex: Male

DRUGS (2)
  1. CADUET [Suspect]
     Indication: BLOOD CHOLESTEROL
     Dates: start: 20060401
  2. CADUET [Suspect]
     Indication: BLOOD PRESSURE

REACTIONS (1)
  - DRUG INEFFECTIVE [None]
